FAERS Safety Report 23361089 (Version 1)
Quarter: 2024Q1

REPORT INFORMATION
  Report Type: Spontaneous
  Country: US (occurrence: US)
  Receive Date: 20240103
  Receipt Date: 20240103
  Transmission Date: 20240409
  Serious: Yes (Other)
  Sender: FDA-Public Use
  Company Number: US-STERISCIENCE B.V.-2023-ST-000531

PATIENT
  Age: 11 Year
  Sex: Female

DRUGS (4)
  1. VANCOMYCIN [Suspect]
     Active Substance: VANCOMYCIN
     Indication: Staphylococcal bacteraemia
     Dosage: UNK
  2. CLINDAMYCIN [Suspect]
     Active Substance: CLINDAMYCIN
     Indication: Staphylococcal bacteraemia
     Dosage: UNK
  3. ENOXAPARIN SODIUM [Suspect]
     Active Substance: ENOXAPARIN SODIUM
     Indication: Venous thrombosis
     Dosage: UNK
  4. HEPARIN [Concomitant]
     Active Substance: HEPARIN SODIUM
     Indication: Venous thrombosis
     Dosage: UNK

REACTIONS (1)
  - Drug reaction with eosinophilia and systemic symptoms [Recovered/Resolved]
